FAERS Safety Report 8144754-X (Version None)
Quarter: 2012Q1

REPORT INFORMATION
  Report Type: 
  Country: None (occurrence: None)
  Receive Date: 20120217
  Receipt Date: 20120214
  Transmission Date: 20120608
  Serious: Yes (Life-Threatening, Hospitalization, Disabling, Other)
  Sender: FDA-Public Use
  Company Number: US-BAYER-2011-068246

PATIENT
  Age: 34 Year
  Sex: Female
  Weight: 81.633 kg

DRUGS (6)
  1. NAPROSYN [Concomitant]
  2. PEPCID [Concomitant]
  3. YASMIN [Suspect]
     Indication: MENSTRUAL CYCLE MANAGEMENT
  4. MEDROL [Concomitant]
  5. DROSPIRENONE AND ETHINYL ESTRADIOL [Suspect]
  6. YAZ [Suspect]

REACTIONS (9)
  - INJURY [None]
  - PULMONARY EMBOLISM [None]
  - GALLBLADDER NON-FUNCTIONING [None]
  - CHOLECYSTITIS CHRONIC [None]
  - EMOTIONAL DISTRESS [None]
  - ANXIETY [None]
  - PAIN [None]
  - ANHEDONIA [None]
  - DEEP VEIN THROMBOSIS [None]
